FAERS Safety Report 10601889 (Version 2)
Quarter: 2015Q1

REPORT INFORMATION
  Report Type: Spontaneous
  Country: BE (occurrence: BE)
  Receive Date: 20141124
  Receipt Date: 20150206
  Transmission Date: 20150720
  Serious: Yes (Hospitalization)
  Sender: FDA-Public Use
  Company Number: BE-SA-2014SA157313

PATIENT
  Sex: Male
  Weight: 74 kg

DRUGS (1)
  1. LEMTRADA [Suspect]
     Active Substance: ALEMTUZUMAB
     Indication: MULTIPLE SCLEROSIS
     Route: 042
     Dates: start: 20140825, end: 20140828

REACTIONS (5)
  - Deafness unilateral [Recovering/Resolving]
  - Ear pain [Recovering/Resolving]
  - Polyneuropathy [Unknown]
  - Balance disorder [Recovering/Resolving]
  - Oropharyngeal pain [Recovering/Resolving]

NARRATIVE: CASE EVENT DATE: 20141110
